FAERS Safety Report 8085736-6 (Version None)
Quarter: 2012Q1

REPORT INFORMATION
  Report Type: 
  Country: None (occurrence: None)
  Receive Date: 20120128
  Receipt Date: 20110411
  Transmission Date: 20120608
  Serious: No
  Sender: FDA-Public Use
  Company Number: US-ABBOTT-11P-163-0716637-00

PATIENT
  Sex: Male
  Weight: 97.61 kg

DRUGS (15)
  1. LIALDA [Concomitant]
     Indication: COLITIS ULCERATIVE
     Dosage: 2.4 MG 2 TABLETS DAILY
  2. ELAVIL [Concomitant]
     Indication: ANXIETY
     Dosage: 20 MG DAILY
  3. WELLBUTRIN [Concomitant]
     Indication: DEPRESSION
  4. CLONOPIN [Concomitant]
     Indication: ANXIETY
     Dosage: 0.5 MG DAILY
  5. ELAVIL [Concomitant]
     Indication: INSOMNIA
  6. HUMIRA [Suspect]
     Indication: COLITIS ULCERATIVE
     Dates: start: 20100901
  7. PEPCID [Concomitant]
     Indication: GASTROOESOPHAGEAL REFLUX DISEASE
     Dosage: 40 MG DAILY
  8. LOMOTIL [Concomitant]
     Indication: COLITIS ULCERATIVE
     Dosage: 10 MG 4 TIMES DAILY
  9. PAXIL CR [Concomitant]
     Indication: ANXIETY
     Dosage: 25 MG DAILY
  10. VITAMIN D [Concomitant]
     Indication: SUPPLEMENTATION THERAPY
  11. LOPERAMIDE HCL [Concomitant]
     Indication: COLITIS ULCERATIVE
     Dosage: 2 MG 3 TIMES A DAY
  12. PAXIL CR [Concomitant]
     Indication: CEREBROVASCULAR ACCIDENT
  13. FLAGYL [Concomitant]
     Indication: COLITIS ULCERATIVE
  14. PREDNISONE TAB [Concomitant]
     Indication: COLITIS ULCERATIVE
     Dosage: 40 MG DAILY
  15. COUMADIN [Concomitant]
     Indication: THROMBOSIS PROPHYLAXIS
     Dosage: 5 MG DAILY

REACTIONS (6)
  - INCREASED UPPER AIRWAY SECRETION [None]
  - ILL-DEFINED DISORDER [None]
  - NASOPHARYNGITIS [None]
  - RIB FRACTURE [None]
  - COUGH [None]
  - PYREXIA [None]
